FAERS Safety Report 10193623 (Version 1)
Quarter: 2014Q2

REPORT INFORMATION
  Report Type: Spontaneous
  Country: US (occurrence: US)
  Receive Date: 20140524
  Receipt Date: 20140524
  Transmission Date: 20141212
  Serious: No
  Sender: FDA-Public Use
  Company Number: US-SA-2013SA135195

PATIENT
  Age: 90 Year
  Sex: Male
  Weight: 77.17 kg

DRUGS (2)
  1. SOLOSTAR [Suspect]
     Indication: DIABETES MELLITUS
     Dosage: STARTED ALMOST ONE YEAR AGO
     Dates: start: 20131002
  2. LANTUS SOLOSTAR [Suspect]
     Indication: DIABETES MELLITUS
     Dosage: STARTED ALMOST ONE YEAR AGO DOSE:15 UNIT(S)
     Route: 051
     Dates: start: 20131002

REACTIONS (1)
  - Blood glucose increased [Recovered/Resolved]
